FAERS Safety Report 24774414 (Version 1)
Quarter: 2024Q4

REPORT INFORMATION
  Report Type: Spontaneous
  Country: US (occurrence: US)
  Receive Date: 20241225
  Receipt Date: 20241225
  Transmission Date: 20250115
  Serious: No
  Sender: AMGEN
  Company Number: US-AMGEN-USASP2024252370

PATIENT

DRUGS (1)
  1. ADALIMUMAB [Suspect]
     Active Substance: ADALIMUMAB
     Indication: Crohn^s disease
     Dosage: UNK
     Route: 065

REACTIONS (6)
  - Loss of therapeutic response [Unknown]
  - Adverse drug reaction [Unknown]
  - Drug specific antibody [Unknown]
  - Post procedural complication [Unknown]
  - Therapy non-responder [Unknown]
  - Treatment noncompliance [Unknown]
